FAERS Safety Report 12754310 (Version 1)
Quarter: 2016Q3

REPORT INFORMATION
  Report Type: Spontaneous
  Country: US (occurrence: US)
  Receive Date: 20160915
  Receipt Date: 20160915
  Transmission Date: 20161109
  Serious: Yes (Other)
  Sender: FDA-Public Use
  Company Number: US-ASTELLAS-2015US047111

PATIENT
  Age: 84 Year
  Sex: Male

DRUGS (1)
  1. XTANDI [Suspect]
     Active Substance: ENZALUTAMIDE
     Indication: PROSTATE CANCER
     Route: 048
     Dates: start: 20141219, end: 20150501

REACTIONS (4)
  - Fatigue [Unknown]
  - Confusional state [Unknown]
  - Malignant neoplasm progression [Unknown]
  - Disorientation [Unknown]

NARRATIVE: CASE EVENT DATE: 20150118
